FAERS Safety Report 24378487 (Version 1)
Quarter: 2024Q3

REPORT INFORMATION
  Report Type: Spontaneous
  Country: US (occurrence: None)
  Receive Date: 20240929
  Receipt Date: 20240929
  Transmission Date: 20241016
  Serious: Yes (Disabling)
  Sender: Public
  Company Number: None

PATIENT
  Age: 52 Year
  Sex: Female
  Weight: 53.55 kg

DRUGS (2)
  1. NONOXYNOL-9 [Suspect]
     Active Substance: NONOXYNOL-9
     Indication: Contraception
     Route: 067
     Dates: start: 20240629
  2. METOPROLOL [Concomitant]
     Active Substance: METOPROLOL

REACTIONS (4)
  - Vasodilatation [None]
  - Skin tightness [None]
  - Rash [None]
  - Thrombosis [None]

NARRATIVE: CASE EVENT DATE: 20240629
